FAERS Safety Report 17355197 (Version 4)
Quarter: 2021Q2

REPORT INFORMATION
  Report Type: Spontaneous
  Country: US (occurrence: US)
  Receive Date: 20200131
  Receipt Date: 20210522
  Transmission Date: 20210716
  Serious: Yes (Other)
  Sender: FDA-Public Use
  Company Number: US-009507513-2001USA009095

PATIENT
  Age: 63 Year
  Sex: Male

DRUGS (10)
  1. SALBUTAMOL [Concomitant]
     Active Substance: ALBUTEROL
  2. NASONEX [Concomitant]
     Active Substance: MOMETASONE FUROATE
  3. PROVENTIL [Suspect]
     Active Substance: ALBUTEROL
     Dosage: 1?2 PUFFS AS NEEDED, 4 OR 5 TIMES A DAY
     Route: 055
     Dates: start: 20210421
  4. IBUPROFEN. [Concomitant]
     Active Substance: IBUPROFEN
     Dosage: 500 MG MORNING AND NIGHT
  5. PROVENTIL [Suspect]
     Active Substance: ALBUTEROL
     Indication: RHINORRHOEA
     Dosage: UNK
     Dates: start: 20201130
  6. PROVENTIL [Suspect]
     Active Substance: ALBUTEROL
     Indication: LUNG NEOPLASM MALIGNANT
     Dosage: 2 PUFF, EVERY 4 HOURS AS NEEDED
     Dates: start: 2007
  7. PREDNISONE. [Concomitant]
     Active Substance: PREDNISONE
     Dosage: 5 MG DAILY
  8. KEFLEX [Concomitant]
     Active Substance: CEPHALEXIN
     Dosage: UNK, PRN
  9. CYANOCOBALAMIN. [Concomitant]
     Active Substance: CYANOCOBALAMIN
     Dosage: 500 MG DAILY
  10. PROVENTIL [Suspect]
     Active Substance: ALBUTEROL
     Indication: CHRONIC OBSTRUCTIVE PULMONARY DISEASE
     Dosage: UNK
     Route: 055

REACTIONS (19)
  - Product dose omission issue [Unknown]
  - Presyncope [Unknown]
  - Cough [Not Recovered/Not Resolved]
  - Product dose omission issue [Unknown]
  - Product use in unapproved indication [Unknown]
  - Dyspnoea [Unknown]
  - Prostate cancer [Unknown]
  - Feeling abnormal [Recovering/Resolving]
  - Stress [Unknown]
  - Anxiety [Unknown]
  - Product delivery mechanism issue [Unknown]
  - Poor quality device used [Unknown]
  - Product use in unapproved indication [Unknown]
  - Product dose omission issue [Unknown]
  - Neoplasm [Unknown]
  - Poor quality device used [Unknown]
  - Aphonia [Recovering/Resolving]
  - Product delivery mechanism issue [Unknown]
  - Product quality issue [Unknown]

NARRATIVE: CASE EVENT DATE: 2007
